FAERS Safety Report 15043950 (Version 1)
Quarter: 2018Q2

REPORT INFORMATION
  Report Type: Report from Study
  Country: US (occurrence: US)
  Receive Date: 20180621
  Receipt Date: 20180621
  Transmission Date: 20180711
  Serious: Yes (Hospitalization, Other)
  Sender: FDA-Public Use
  Company Number: US-GILEAD-2018-0343747

PATIENT
  Age: 70 Year
  Sex: Male

DRUGS (4)
  1. AMLODIPINE [Concomitant]
     Active Substance: AMLODIPINE BESYLATE
  2. XARELTO [Concomitant]
     Active Substance: RIVAROXABAN
  3. AMBRISENTAN [Suspect]
     Active Substance: AMBRISENTAN
     Indication: PULMONARY ARTERIAL HYPERTENSION
     Dosage: 10 MG, QD
     Route: 065
     Dates: start: 20180608
  4. AMBRISENTAN [Suspect]
     Active Substance: AMBRISENTAN
     Dosage: 5 MG, QD
     Route: 065
     Dates: start: 20180607

REACTIONS (13)
  - Oxygen saturation decreased [Unknown]
  - Wheezing [Unknown]
  - Pericardial effusion [Unknown]
  - Mitral valve incompetence [Unknown]
  - Dyspnoea [Unknown]
  - Nausea [Unknown]
  - Swelling face [Unknown]
  - Headache [Unknown]
  - Pleural effusion [Unknown]
  - Cardiomegaly [Unknown]
  - Pulmonary oedema [Recovering/Resolving]
  - Flushing [Unknown]
  - Erythema [Unknown]

NARRATIVE: CASE EVENT DATE: 20180610
